FAERS Safety Report 8921993 (Version 1)
Quarter: 2012Q4

REPORT INFORMATION
  Report Type: Spontaneous
  Country: US (occurrence: None)
  Receive Date: 20121120
  Receipt Date: 20121120
  Transmission Date: 20130627
  Serious: Yes (Hospitalization)
  Sender: FDA-Public Use
  Company Number: None

PATIENT
  Age: 79 Year
  Sex: Male

DRUGS (2)
  1. XELODA [Suspect]
     Indication: NEOPLASM MALIGNANT
     Dosage: 2000MG QAM +QPM PO
     Route: 048
     Dates: start: 20121018, end: 20121031
  2. XELODA [Suspect]
     Dosage: 2000MG QAM +QPM PO
     Route: 048
     Dates: start: 20121018, end: 20121031

REACTIONS (5)
  - Nausea [None]
  - Vomiting [None]
  - Diarrhoea [None]
  - Palpitations [None]
  - Dehydration [None]
